FAERS Safety Report 6187603-1 (Version None)
Quarter: 2009Q2

REPORT INFORMATION
  Report Type: 
  Country: None (occurrence: None)
  Receive Date: 20090511
  Receipt Date: 20090429
  Transmission Date: 20091009
  Serious: Yes (Disabling)
  Sender: FDA-Public Use
  Company Number: 260301

PATIENT
  Age: 15 Year
  Sex: Male

DRUGS (7)
  1. CYTARABINE [Suspect]
     Indication: PROPHYLAXIS
     Dosage: INTRATHECAL
     Route: 037
  2. METHOTREXATE [Suspect]
     Indication: PROPHYLAXIS
     Dosage: INTRATHECAL
     Route: 037
  3. (THERAPEUTIC RADIOPHARMACEUTICALS) [Suspect]
     Indication: PROPHYLAXIS
     Dosage: 18 GY,
  4. VINCRISTINE [Concomitant]
  5. PREDNISONE [Concomitant]
  6. ADRIAMYCIN PFS [Concomitant]
  7. DAUNORUBICIN HCL [Concomitant]

REACTIONS (1)
  - GRAND MAL CONVULSION [None]
